FAERS Safety Report 20894237 (Version 1)
Quarter: 2022Q2

REPORT INFORMATION
  Report Type: Spontaneous
  Country: RU (occurrence: RU)
  Receive Date: 20220531
  Receipt Date: 20220531
  Transmission Date: 20220720
  Serious: Yes (Life-Threatening, Hospitalization, Other)
  Sender: FDA-Public Use
  Company Number: RU-BAYER-2022P003472

PATIENT
  Age: 87 Year
  Sex: Male
  Weight: 85 kg

DRUGS (3)
  1. RIVAROXABAN [Suspect]
     Active Substance: RIVAROXABAN
     Indication: Atrial fibrillation
     Dosage: 20 MG, QD
     Route: 048
     Dates: end: 20220523
  2. ENALAPRIL [Concomitant]
     Active Substance: ENALAPRIL
     Indication: Hypertensive heart disease
     Dosage: 5 MG, QD
     Route: 048
     Dates: end: 20220523
  3. FUROSEMIDE [Concomitant]
     Active Substance: FUROSEMIDE
     Dosage: 40 MG, QD
     Route: 048

REACTIONS (7)
  - Gastric ulcer [Recovering/Resolving]
  - Gastric ulcer haemorrhage [Recovering/Resolving]
  - Cardiac failure chronic [Unknown]
  - Iron deficiency anaemia [Unknown]
  - Hypertension [Unknown]
  - Coronary artery disease [Unknown]
  - Asthenia [Unknown]

NARRATIVE: CASE EVENT DATE: 20220522
